FAERS Safety Report 9439607 (Version 1)
Quarter: 2013Q3

REPORT INFORMATION
  Report Type: Report from Study
  Country: CL (occurrence: CL)
  Receive Date: 20130805
  Receipt Date: 20130805
  Transmission Date: 20140515
  Serious: Yes (Other)
  Sender: FDA-Public Use
  Company Number: CL-ROCHE-1257112

PATIENT
  Age: 70 Year
  Sex: Female
  Weight: 69 kg

DRUGS (1)
  1. XELODA [Suspect]
     Indication: COLON CANCER
     Dosage: 14-DAY-CYCLE
     Route: 048
     Dates: start: 20130613, end: 20130711

REACTIONS (1)
  - Hepatic neoplasm [Not Recovered/Not Resolved]
